FAERS Safety Report 5759853-7 (Version None)
Quarter: 2008Q2

REPORT INFORMATION
  Report Type: 
  Country: None (occurrence: None)
  Receive Date: 20080605
  Receipt Date: 20080531
  Transmission Date: 20081010
  Serious: Yes (Other)
  Sender: FDA-Public Use
  Company Number: PHBS2007BR15331

PATIENT
  Age: 55 Year
  Sex: Female

DRUGS (2)
  1. PREXIGE [Suspect]
     Indication: SCIATIC NERVE NEUROPATHY
     Dosage: 400 MG, QD
     Route: 048
     Dates: start: 20070914
  2. VOLTAREN [Suspect]
     Indication: PERIPHERAL NERVE LESION
     Dosage: UNK
     Dates: start: 20070913

REACTIONS (5)
  - ERYTHEMA [None]
  - HAEMATOMA [None]
  - LARYNGEAL OEDEMA [None]
  - OEDEMA [None]
  - PRURITUS [None]
